FAERS Safety Report 15825033 (Version 2)
Quarter: 2019Q1

REPORT INFORMATION
  Report Type: Spontaneous
  Country: ID (occurrence: ID)
  Receive Date: 20190115
  Receipt Date: 20190201
  Transmission Date: 20190417
  Serious: Yes (Life-Threatening, Other)
  Sender: FDA-Public Use
  Company Number: ID-TEVA-2019-ID-999030

PATIENT
  Age: 64 Year
  Sex: Male

DRUGS (2)
  1. SINDAXEL [Suspect]
     Active Substance: PACLITAXEL
     Indication: NEOPLASM MALIGNANT
     Dosage: 210 MILLIGRAM DAILY;
     Route: 042
     Dates: start: 20190102, end: 20190102
  2. DEXAMETHASONE 20MG [Suspect]
     Active Substance: DEXAMETHASONE
     Indication: PREMEDICATION
     Dosage: 4 AMPOULE ADMINISTERED PRIOR TO PACLITAXEL INFUSION.

REACTIONS (1)
  - Anaphylactic shock [Unknown]

NARRATIVE: CASE EVENT DATE: 20190102
